FAERS Safety Report 20373672 (Version 1)
Quarter: 2022Q1

REPORT INFORMATION
  Report Type: Spontaneous
  Country: CN (occurrence: None)
  Receive Date: 20220125
  Receipt Date: 20220125
  Transmission Date: 20220423
  Serious: Yes (Other)
  Sender: FDA-Public Use
  Company Number: CN-ROCHE-3002346

PATIENT
  Age: 73 Year
  Sex: Male

DRUGS (3)
  1. TECENTRIQ [Suspect]
     Active Substance: ATEZOLIZUMAB
     Indication: Small cell lung cancer
     Dosage: EC+T, 17 CYCLES OF ATEZOLIZUMAB MONOTHERAPY
     Route: 065
     Dates: start: 20200701
  2. ETOPOSIDE [Concomitant]
     Active Substance: ETOPOSIDE
     Indication: Small cell lung cancer
     Dosage: EC+T: 150MG  D1-D3, 100MG D4
     Dates: start: 20200701
  3. CARBOPLATIN [Concomitant]
     Active Substance: CARBOPLATIN
     Indication: Small cell lung cancer
     Dosage: EC+T: D1
     Dates: start: 20200701

REACTIONS (2)
  - Pruritus [Unknown]
  - Myelosuppression [Unknown]
